FAERS Safety Report 24963990 (Version 1)
Quarter: 2025Q1

REPORT INFORMATION
  Report Type: Spontaneous
  Country: IT (occurrence: IT)
  Receive Date: 20250213
  Receipt Date: 20250213
  Transmission Date: 20250409
  Serious: Yes (Other)
  Sender: JOHNSON AND JOHNSON
  Company Number: None

PATIENT
  Age: 77 Year
  Sex: Female

DRUGS (5)
  1. XARELTO [Suspect]
     Active Substance: RIVAROXABAN
     Indication: Atrial fibrillation
     Dosage: 20 MG, QD
     Route: 048
     Dates: start: 202207, end: 202306
  2. LASIX [Concomitant]
     Active Substance: FUROSEMIDE
     Indication: Product used for unknown indication
     Dosage: 25 MG, QD
     Route: 048
  3. NEBIVOLOL HYDROCHLORIDE [Concomitant]
     Active Substance: NEBIVOLOL HYDROCHLORIDE
     Indication: Product used for unknown indication
     Route: 048
  4. PRECTIAZIDE [Concomitant]
     Indication: Product used for unknown indication
     Dosage: UNK UNK, QD
     Route: 048
  5. LACIDIPINE [Concomitant]
     Active Substance: LACIDIPINE
     Indication: Product used for unknown indication
     Dosage: 6 MG, QD
     Route: 048

REACTIONS (1)
  - Renal impairment [Recovering/Resolving]

NARRATIVE: CASE EVENT DATE: 20230601
